FAERS Safety Report 18988212 (Version 1)
Quarter: 2021Q1

REPORT INFORMATION
  Report Type: Spontaneous
  Country: US (occurrence: US)
  Receive Date: 20210309
  Receipt Date: 20210309
  Transmission Date: 20210420
  Serious: Yes (Other)
  Sender: FDA-Public Use
  Company Number: US-GLAXOSMITHKLINE-US2021GSK047133

PATIENT
  Sex: Male

DRUGS (10)
  1. RANITIDINE HYDROCHLORIDE. [Suspect]
     Active Substance: RANITIDINE HYDROCHLORIDE
     Indication: DYSPEPSIA
     Dosage: 75 MG OVER THE COUNTER OCCASIONAL
     Route: 065
     Dates: start: 200101, end: 202004
  2. ZANTAC [Suspect]
     Active Substance: RANITIDINE HYDROCHLORIDE
     Indication: DYSPEPSIA
     Dosage: 25 MG OVER THE COUNTER OCCASIONAL
     Route: 065
     Dates: start: 200101, end: 202004
  3. RANITIDINE HYDROCHLORIDE. [Suspect]
     Active Substance: RANITIDINE HYDROCHLORIDE
     Indication: DYSPEPSIA
     Dosage: 25 MG OVER THE COUNTER OCCASIONAL
     Route: 065
     Dates: start: 200101, end: 202004
  4. RANITIDINE HYDROCHLORIDE. [Suspect]
     Active Substance: RANITIDINE HYDROCHLORIDE
     Indication: DYSPEPSIA
     Dosage: 25 MG OVER THE COUNTER OCCASIONAL
     Route: 065
     Dates: start: 200101, end: 202004
  5. RANITIDINE HYDROCHLORIDE. [Suspect]
     Active Substance: RANITIDINE HYDROCHLORIDE
     Dosage: 150 MG OVER THE COUNTER OCCASIONAL
     Route: 065
     Dates: start: 200101, end: 202004
  6. ZANTAC [Suspect]
     Active Substance: RANITIDINE HYDROCHLORIDE
     Indication: DYSPEPSIA
     Dosage: 25 MG OCCASIONAL OVER THE COUNTER
     Route: 065
     Dates: start: 200101, end: 202004
  7. ZANTAC [Suspect]
     Active Substance: RANITIDINE HYDROCHLORIDE
     Indication: DYSPEPSIA
     Dosage: 75 MG, OCCASIONAL  OVER THE COUNTER
     Route: 065
     Dates: start: 200101, end: 202004
  8. RANITIDINE HYDROCHLORIDE. [Suspect]
     Active Substance: RANITIDINE HYDROCHLORIDE
     Indication: DYSPEPSIA
     Dosage: 75 MG OVER THE COUNTER OCCASIONAL
     Route: 065
     Dates: start: 200101, end: 202004
  9. ZANTAC [Suspect]
     Active Substance: RANITIDINE HYDROCHLORIDE
     Indication: DYSPEPSIA
     Dosage: 75 MG, OVER THE COUNTER OVER THE COUNTER
     Route: 065
     Dates: start: 200101, end: 202004
  10. RANITIDINE HYDROCHLORIDE. [Suspect]
     Active Substance: RANITIDINE HYDROCHLORIDE
     Dosage: 150 MG OVER THE COUNTER OCCASIONAL
     Route: 065
     Dates: start: 200101, end: 202004

REACTIONS (1)
  - Renal cancer [Unknown]
